FAERS Safety Report 9183211 (Version 1)
Quarter: 2013Q1

REPORT INFORMATION
  Report Type: Spontaneous
  Country: US (occurrence: US)
  Receive Date: 20130322
  Receipt Date: 20130322
  Transmission Date: 20140127
  Serious: No
  Sender: FDA-Public Use
  Company Number: US-BRISTOL-MYERS SQUIBB COMPANY-17045360

PATIENT
  Age: 67 Year
  Sex: Male

DRUGS (5)
  1. ERBITUX [Suspect]
     Indication: COLON CANCER
     Dosage: LAST DOSE 09OCT2012.800MG THEN REDUCED TO 500MG
     Dates: start: 20120814
  2. IRINOTECAN [Suspect]
     Dosage: FOR 2 CYCLES
  3. OXALIPLATIN [Suspect]
  4. 5-FU [Suspect]
  5. FOLINIC ACID [Suspect]

REACTIONS (2)
  - Rash [Recovered/Resolved]
  - Eye infection [Recovering/Resolving]
